FAERS Safety Report 21746778 (Version 1)
Quarter: 2022Q4

REPORT INFORMATION
  Report Type: Spontaneous
  Country: US (occurrence: US)
  Receive Date: 20221219
  Receipt Date: 20221219
  Transmission Date: 20230113
  Serious: Yes (Other)
  Sender: FDA-Public Use
  Company Number: US-009507513-2212USA005680

PATIENT
  Age: 83 Year
  Sex: Male

DRUGS (4)
  1. KEYTRUDA [Suspect]
     Active Substance: PEMBROLIZUMAB
     Indication: Transitional cell carcinoma
     Dosage: 200 MILLIGRAM (MG), CYCLIC, D1
     Dates: start: 20220901, end: 20220901
  2. PADCEV [Suspect]
     Active Substance: ENFORTUMAB VEDOTIN-EJFV
     Indication: Transitional cell carcinoma
     Dosage: 1.25 MILLIGRAM/SQ. METER (MG/M2), CYCLIC
     Dates: start: 20220901
  3. ENFORTUMAB VEDOTIN [Suspect]
     Active Substance: ENFORTUMAB VEDOTIN
     Dosage: REGIMEN #2, CYCLE 2 (C2), CYCLICAL
     Dates: start: 20220922
  4. ENFORTUMAB VEDOTIN [Suspect]
     Active Substance: ENFORTUMAB VEDOTIN
     Dosage: UNK, CYCLICAL, CYCLE3 (C3)
     Dates: start: 20221103

REACTIONS (11)
  - Neuropathy peripheral [Unknown]
  - Stomatitis [Unknown]
  - Anxiety [Unknown]
  - Taste disorder [Unknown]
  - Hypophagia [Unknown]
  - Peroneal nerve palsy [Unknown]
  - Oral pain [Unknown]
  - Dehydration [Unknown]
  - Weight decreased [Unknown]
  - Dry mouth [Unknown]
  - Pain [Recovered/Resolved]

NARRATIVE: CASE EVENT DATE: 20220101
